FAERS Safety Report 9433807 (Version 1)
Quarter: 2013Q3

REPORT INFORMATION
  Report Type: Report from Study
  Country: BR (occurrence: BR)
  Receive Date: 20130731
  Receipt Date: 20130731
  Transmission Date: 20140515
  Serious: Yes (Hospitalization)
  Sender: FDA-Public Use
  Company Number: PHHY2013BR067832

PATIENT
  Age: 93 Year
  Sex: Female

DRUGS (5)
  1. DIOVAN TRIPLE [Suspect]
     Indication: HYPERTENSION
     Dosage: 1 DF (160 MG VALS/ 5 MG AMLO/ 12,5 MG HYDRO), QD
     Route: 048
  2. DIOVAN TRIPLE [Suspect]
     Dosage: 1 DF (160 MG VALS/ 12.5 MG HYDRO), QD, WITHOUT AMLODIPINE
     Route: 048
  3. BENICAR [Suspect]
  4. BROMAZEPAM [Concomitant]
     Indication: INSOMNIA
     Dosage: 0.5 DF, A DAY
     Route: 048
  5. CELAPRAM [Concomitant]
     Indication: ANTIDEPRESSANT THERAPY
     Dosage: 1 DF(20 MG) A DAY
     Route: 048

REACTIONS (9)
  - Diverticulitis [Unknown]
  - Colitis [Recovering/Resolving]
  - Diarrhoea [Recovered/Resolved]
  - Frequent bowel movements [Recovering/Resolving]
  - Local swelling [Not Recovered/Not Resolved]
  - Hypotension [Recovering/Resolving]
  - Blood pressure fluctuation [Recovering/Resolving]
  - Dehydration [Recovering/Resolving]
  - Drug administration error [Unknown]
